FAERS Safety Report 9278811 (Version 1)
Quarter: 2013Q2

REPORT INFORMATION
  Report Type: Spontaneous
  Country: US (occurrence: None)
  Receive Date: 20130506
  Receipt Date: 20130506
  Transmission Date: 20140414
  Serious: Yes (Other)
  Sender: FDA-Public Use
  Company Number: None

PATIENT
  Age: 45 Year
  Sex: Male
  Weight: 158.76 kg

DRUGS (1)
  1. BUPROP [Suspect]
     Indication: DEPRESSION
     Route: 048
     Dates: start: 20130322, end: 20130422

REACTIONS (2)
  - Product substitution issue [None]
  - Drug ineffective [None]
